FAERS Safety Report 6170063-4 (Version None)
Quarter: 2009Q2

REPORT INFORMATION
  Report Type: 
  Country: None (occurrence: None)
  Receive Date: 20090428
  Receipt Date: 20090420
  Transmission Date: 20091009
  Serious: Yes (Hospitalization)
  Sender: FDA-Public Use
  Company Number: A0758021A

PATIENT
  Age: 55 Year
  Sex: Male
  Weight: 150 kg

DRUGS (1)
  1. AVANDIA [Suspect]
     Dosage: 4MG IN THE MORNING
     Route: 065
     Dates: start: 20040101

REACTIONS (2)
  - ATRIAL FIBRILLATION [None]
  - CARDIAC FAILURE CONGESTIVE [None]
